FAERS Safety Report 21692999 (Version 2)
Quarter: 2024Q1

REPORT INFORMATION
  Report Type: Report from Study
  Country: EG (occurrence: EG)
  Receive Date: 20221207
  Receipt Date: 20240222
  Transmission Date: 20240410
  Serious: Yes (Other)
  Sender: FDA-Public Use
  Company Number: EG-002147023-NVSC2022EG279669

PATIENT
  Age: 46 Year
  Sex: Male

DRUGS (6)
  1. GLIVEC [Suspect]
     Active Substance: IMATINIB MESYLATE
     Indication: Chronic myeloid leukaemia
     Dosage: 1 DOSAGE FORM, QD (7 YEARS AGO)
     Route: 048
  2. GLIVEC [Suspect]
     Active Substance: IMATINIB MESYLATE
     Dosage: 400 MG, QD
     Route: 048
     Dates: start: 201505, end: 20240218
  3. FOLIC ACID [Concomitant]
     Active Substance: FOLIC ACID
     Indication: Energy increased
     Dosage: 1 DOSAGE FORM, QD  (1 TABLET PER DAY) ( UNKNOWN START DATE AND STOPPED 6 MONTHS AGO AND ONE MONTH AG
     Route: 048
  4. VITAMIN B12 [Concomitant]
     Active Substance: CYANOCOBALAMIN
     Indication: Erythropoiesis abnormal
     Dosage: 1 DOSAGE FORM, QD (1 TABLET PER DAY)(MANY YEARS AGO STOPPED ONE MONTH AGO)
     Route: 060
  5. DEPOVIT B12 [Concomitant]
     Indication: Energy increased
     Dosage: UNK (ONE INJECTION) (MANY YEARS AGO THE LAST TIME HE TOOK IT WAS 4 OR 5 DAYS AGO {HE DOESN^T TAKE IT
     Route: 065
  6. CONTROLOC [Concomitant]
     Active Substance: PANTOPRAZOLE SODIUM
     Indication: Abdominal discomfort
     Dosage: UNK, QD
     Route: 065
     Dates: start: 2015

REACTIONS (16)
  - Pallor [Not Recovered/Not Resolved]
  - Eye inflammation [Not Recovered/Not Resolved]
  - Intraocular pressure increased [Not Recovered/Not Resolved]
  - Ocular hyperaemia [Not Recovered/Not Resolved]
  - Prostatic disorder [Not Recovered/Not Resolved]
  - Urinary retention [Not Recovered/Not Resolved]
  - Fatigue [Not Recovered/Not Resolved]
  - Lacrimation increased [Not Recovered/Not Resolved]
  - Blood cholesterol increased [Not Recovered/Not Resolved]
  - Gout [Not Recovered/Not Resolved]
  - Blood sodium increased [Not Recovered/Not Resolved]
  - Eye pain [Not Recovered/Not Resolved]
  - Pain in extremity [Not Recovered/Not Resolved]
  - Hepatic steatosis [Not Recovered/Not Resolved]
  - Polymerase chain reaction positive [Not Recovered/Not Resolved]
  - Haemoglobin decreased [Not Recovered/Not Resolved]

NARRATIVE: CASE EVENT DATE: 20150515
